FAERS Safety Report 24198969 (Version 1)
Quarter: 2024Q3

REPORT INFORMATION
  Report Type: Report from Study
  Country: UM (occurrence: UM)
  Receive Date: 20240812
  Receipt Date: 20240812
  Transmission Date: 20241017
  Serious: Yes (Other)
  Sender: JOHNSON AND JOHNSON
  Company Number: UM-JNJFOC-20240821669

PATIENT
  Sex: Female

DRUGS (1)
  1. DARZALEX FASPRO [Suspect]
     Active Substance: DARATUMUMAB\HYALURONIDASE-FIHJ
     Indication: Prostate cancer
     Route: 048
     Dates: start: 20240219

REACTIONS (3)
  - Stem cell transplant [Unknown]
  - Weight decreased [Not Recovered/Not Resolved]
  - Off label use [Unknown]
